FAERS Safety Report 8239067-1 (Version None)
Quarter: 2012Q1

REPORT INFORMATION
  Report Type: 
  Country: None (occurrence: None)
  Receive Date: 20120327
  Receipt Date: 20120319
  Transmission Date: 20120608
  Serious: Yes (Other)
  Sender: FDA-Public Use
  Company Number: US-ASTRAZENECA-2011SE60099

PATIENT
  Age: 67 Year
  Sex: Female

DRUGS (24)
  1. CRESTOR [Suspect]
     Route: 048
  2. FERROUS SULFATE TAB [Concomitant]
  3. ADVAIR DISKUS 100/50 [Concomitant]
     Dosage: 250/50
  4. METHYLPREDNISOLONE [Concomitant]
  5. PREDNISONE TAB [Concomitant]
  6. TAZTIA XT [Concomitant]
  7. TRAMADOL HCL [Concomitant]
  8. ARIMIDEX [Suspect]
     Route: 048
  9. ALBUTEROL [Concomitant]
     Route: 055
  10. AZITHROMYCIN [Concomitant]
  11. RANITIDINE [Concomitant]
  12. AVELOX [Concomitant]
  13. FLUCONAZOLE [Concomitant]
  14. NOREL [Concomitant]
  15. PREDNISONE TAB [Concomitant]
  16. PROAIR HFA [Concomitant]
     Dosage: 90 MCG
     Route: 055
  17. SPIRIVA [Concomitant]
     Dosage: 18 MCG
  18. TRAZODONE HCL [Concomitant]
  19. ALPRAZOLAM [Concomitant]
  20. HYDROCODONE BITARTRATE AND ACETAMINOPHEN [Concomitant]
     Dosage: 10/500
  21. LEVOFLOXACIN [Concomitant]
  22. PREDNISONE TAB [Concomitant]
  23. AZITHROMYCIN [Concomitant]
  24. DOXYCYCLINE HYCLATE [Concomitant]

REACTIONS (2)
  - MALAISE [None]
  - NEOPLASM MALIGNANT [None]
